FAERS Safety Report 11719680 (Version 1)
Quarter: 2015Q4

REPORT INFORMATION
  Report Type: Spontaneous
  Country: US (occurrence: None)
  Receive Date: 20151109
  Receipt Date: 20151109
  Transmission Date: 20160304
  Serious: No
  Sender: FDA-Public Use
  Company Number: None

PATIENT
  Age: 52 Year
  Sex: Male
  Weight: 70.31 kg

DRUGS (7)
  1. PAXIL [Suspect]
     Active Substance: PAROXETINE HYDROCHLORIDE
     Indication: ANXIETY
     Dosage: TAKEN BY MOUTH
     Dates: start: 20141224, end: 20150911
  2. LEVOXYL [Concomitant]
     Active Substance: LEVOTHYROXINE SODIUM
  3. PROAIR HFA [Concomitant]
     Active Substance: ALBUTEROL SULFATE
  4. PAXIL [Suspect]
     Active Substance: PAROXETINE HYDROCHLORIDE
     Indication: DEPRESSION
     Dosage: TAKEN BY MOUTH
     Dates: start: 20141224, end: 20150911
  5. PAXIL [Suspect]
     Active Substance: PAROXETINE HYDROCHLORIDE
     Indication: WEIGHT DECREASED
     Dosage: TAKEN BY MOUTH
     Dates: start: 20141224, end: 20150911
  6. ASTELIN [Concomitant]
     Active Substance: AZELASTINE HYDROCHLORIDE
  7. OMNARIS [Concomitant]
     Active Substance: CICLESONIDE

REACTIONS (6)
  - Torticollis [None]
  - Fatigue [None]
  - Tremor [None]
  - Dyspepsia [None]
  - Hypersomnia [None]
  - Muscular weakness [None]

NARRATIVE: CASE EVENT DATE: 20140508
